FAERS Safety Report 24141757 (Version 1)
Quarter: 2024Q3

REPORT INFORMATION
  Report Type: Spontaneous
  Country: US (occurrence: None)
  Receive Date: 20240726
  Receipt Date: 20240726
  Transmission Date: 20241017
  Serious: Yes (Hospitalization)
  Sender: Public
  Company Number: None

PATIENT
  Sex: Female

DRUGS (1)
  1. HUMIRA [Suspect]
     Active Substance: ADALIMUMAB
     Indication: Rheumatoid arthritis
     Dosage: 40 MG EVERY OTHER WEEK SUBCUTANEOUS
     Route: 058
     Dates: start: 202201

REACTIONS (4)
  - Therapy interrupted [None]
  - Haematological infection [None]
  - Streptococcal infection [None]
  - Pain [None]
